FAERS Safety Report 7841647-X (Version None)
Quarter: 2011Q4

REPORT INFORMATION
  Report Type: 
  Country: None (occurrence: None)
  Receive Date: 20111024
  Receipt Date: 20111024
  Transmission Date: 20120403
  Serious: No
  Sender: FDA-Public Use
  Company Number: None

PATIENT
  Age: 80 Year
  Sex: Female
  Weight: 62.5964 kg

DRUGS (2)
  1. PROLIA [Suspect]
     Indication: OSTEOPOROSIS
     Dosage: 1 SHOT 6 MONTHS,  2ND SHOT
     Dates: start: 20110128
  2. PROLIA [Suspect]
     Indication: OSTEOPOROSIS
     Dosage: 1 SHOT 6 MONTHS,  2ND SHOT
     Dates: start: 20110728

REACTIONS (4)
  - PRURITUS [None]
  - BLISTER [None]
  - ERYTHEMA [None]
  - URTICARIA [None]
